FAERS Safety Report 4450312-0 (Version None)
Quarter: 2004Q3

REPORT INFORMATION
  Report Type: 
  Country: None (occurrence: None)
  Receive Date: 20040914
  Receipt Date: 20040831
  Transmission Date: 20050211
  Serious: Yes (Death)
  Sender: FDA-Public Use
  Company Number: 04P-167-0272340-00

PATIENT
  Age: 45 Year
  Sex: Male
  Weight: 65 kg

DRUGS (4)
  1. KALETRA [Suspect]
     Indication: HIV INFECTION
     Dosage: 4 CAPSULES, 2 IN 1 D, ORAL
     Route: 048
     Dates: start: 20020201
  2. DIDANOSINE [Suspect]
     Indication: HIV INFECTION
     Dosage: 40 MG, 1 IN 1 D, ORAL
     Route: 048
     Dates: start: 20020901
  3. EFAVIRENZ [Suspect]
     Indication: HIV INFECTION
     Dosage: 600 MG, 1 IN 1 D, ORAL
     Route: 048
     Dates: start: 20020901
  4. PRAVASTATIN [Concomitant]

REACTIONS (3)
  - LIPIDS INCREASED [None]
  - MYOCARDIAL INFARCTION [None]
  - SUDDEN DEATH [None]
